FAERS Safety Report 5317017-5 (Version None)
Quarter: 2007Q2

REPORT INFORMATION
  Report Type: 
  Country: None (occurrence: None)
  Receive Date: 20070504
  Receipt Date: 20070426
  Transmission Date: 20071010
  Serious: Yes (Hospitalization)
  Sender: FDA-Public Use
  Company Number: IT-ROCHE-494912

PATIENT
  Age: 60 Year
  Sex: Female

DRUGS (5)
  1. TICLID [Suspect]
     Indication: VENOUS INSUFFICIENCY
     Route: 048
     Dates: start: 20070303, end: 20070403
  2. LASIX [Concomitant]
     Route: 048
     Dates: start: 20040101
  3. METFORMIN HCL [Concomitant]
     Route: 048
     Dates: start: 20040101
  4. KARVEA [Concomitant]
     Route: 048
     Dates: start: 20040101
  5. MEPRAL [Concomitant]
     Route: 048
     Dates: start: 20040101

REACTIONS (5)
  - FACE OEDEMA [None]
  - GRANULOCYTOPENIA [None]
  - JAUNDICE CHOLESTATIC [None]
  - PRURITUS [None]
  - URTICARIA [None]
